FAERS Safety Report 14626250 (Version 1)
Quarter: 2018Q1

REPORT INFORMATION
  Report Type: Spontaneous
  Country: US (occurrence: US)
  Receive Date: 20180312
  Receipt Date: 20180312
  Transmission Date: 20180509
  Serious: Yes (Death, Other)
  Sender: FDA-Public Use
  Company Number: US-TEVA-2018-US-867481

PATIENT
  Sex: Male

DRUGS (1)
  1. AMIODARONE [Suspect]
     Active Substance: AMIODARONE
     Indication: ATRIAL FIBRILLATION
     Route: 065

REACTIONS (15)
  - Nervousness [Unknown]
  - Disturbance in attention [Unknown]
  - Toxicity to various agents [Fatal]
  - Asthenia [Unknown]
  - Irritability [Unknown]
  - Off label use [Unknown]
  - Acute respiratory failure [Unknown]
  - Chronic respiratory failure [Unknown]
  - Interstitial lung disease [Fatal]
  - Lung disorder [Unknown]
  - Wheezing [Unknown]
  - Cough [Unknown]
  - Dyspnoea [Unknown]
  - Fatigue [Unknown]
  - Restlessness [Unknown]

NARRATIVE: CASE EVENT DATE: 20160218
